FAERS Safety Report 14259873 (Version 2)
Quarter: 2018Q1

REPORT INFORMATION
  Report Type: Spontaneous
  Country: US (occurrence: US)
  Receive Date: 20171207
  Receipt Date: 20180115
  Transmission Date: 20180508
  Serious: Yes (Life-Threatening, Disabling, Other)
  Sender: FDA-Public Use
  Company Number: US-009507513-1712USA001565

PATIENT
  Sex: Female

DRUGS (1)
  1. KEYTRUDA [Suspect]
     Active Substance: PEMBROLIZUMAB
     Indication: TRIPLE NEGATIVE BREAST CANCER
     Dosage: UNK
     Route: 042
     Dates: start: 201711

REACTIONS (2)
  - Product use in unapproved indication [Unknown]
  - Dermatomyositis [Not Recovered/Not Resolved]

NARRATIVE: CASE EVENT DATE: 2017
